FAERS Safety Report 5694413-8 (Version None)
Quarter: 2008Q2

REPORT INFORMATION
  Report Type: 
  Country: None (occurrence: None)
  Receive Date: 20080403
  Receipt Date: 20080403
  Transmission Date: 20081010
  Serious: Yes (Life-Threatening, Hospitalization)
  Sender: FDA-Public Use
  Company Number: None

PATIENT
  Age: 18 Year
  Sex: Male
  Weight: 116.5744 kg

DRUGS (1)
  1. SINGULAIR [Suspect]
     Indication: BRONCHIAL HYPERREACTIVITY
     Dosage: 10MG DAILY PO
     Route: 048
     Dates: start: 20080128, end: 20080331

REACTIONS (5)
  - FRUSTRATION [None]
  - INCORRECT DOSE ADMINISTERED [None]
  - MOOD ALTERED [None]
  - MOOD SWINGS [None]
  - SUICIDAL BEHAVIOUR [None]
